FAERS Safety Report 8383291-4 (Version None)
Quarter: 2012Q2

REPORT INFORMATION
  Report Type: 
  Country: None (occurrence: None)
  Receive Date: 20120523
  Receipt Date: 20120508
  Transmission Date: 20120825
  Serious: Yes (Hospitalization)
  Sender: FDA-Public Use
  Company Number: 2012S1000561

PATIENT
  Age: 56 Year
  Sex: Female

DRUGS (2)
  1. ASPIRIN [Concomitant]
  2. LIVALO [Suspect]
     Dosage: 2 MG;PO
     Route: 048

REACTIONS (3)
  - JAUNDICE [None]
  - CHROMATURIA [None]
  - MYALGIA [None]
